FAERS Safety Report 11569271 (Version 2)
Quarter: 2015Q4

REPORT INFORMATION
  Report Type: Spontaneous
  Country: US (occurrence: US)
  Receive Date: 20150929
  Receipt Date: 20151021
  Transmission Date: 20160304
  Serious: Yes (Hospitalization, Other)
  Sender: FDA-Public Use
  Company Number: US-ASTRAZENECA-2015SE92412

PATIENT
  Age: 23460 Day
  Sex: Female
  Weight: 72.6 kg

DRUGS (8)
  1. SEROQUEL [Suspect]
     Active Substance: QUETIAPINE FUMARATE
     Indication: DEPRESSION
     Dosage: TWICE
     Route: 048
     Dates: start: 201508
  2. SEROQUEL [Suspect]
     Active Substance: QUETIAPINE FUMARATE
     Indication: DEPRESSION
     Route: 048
     Dates: start: 20150917, end: 20150919
  3. SEROQUEL [Suspect]
     Active Substance: QUETIAPINE FUMARATE
     Indication: DEPRESSION
     Route: 048
     Dates: start: 20150920
  4. SEROQUEL [Suspect]
     Active Substance: QUETIAPINE FUMARATE
     Indication: DEPRESSION
     Dosage: 225-250 MG AT NIGHT
     Route: 048
     Dates: start: 2007, end: 2013
  5. SEROQUEL [Suspect]
     Active Substance: QUETIAPINE FUMARATE
     Indication: DEPRESSION
     Route: 048
     Dates: start: 20150704
  6. SEROQUEL [Suspect]
     Active Substance: QUETIAPINE FUMARATE
     Indication: DEPRESSION
     Dosage: SPLITTING A SEROQUEL XR 300 MG TABLET INTO THIRDS AND TAKING 100 MG
     Route: 048
     Dates: start: 20150919
  7. SEROQUEL [Suspect]
     Active Substance: QUETIAPINE FUMARATE
     Indication: DEPRESSION
     Route: 048
  8. SEROQUEL [Suspect]
     Active Substance: QUETIAPINE FUMARATE
     Indication: DEPRESSION
     Route: 048
     Dates: start: 20150704

REACTIONS (22)
  - Hypertension [Unknown]
  - Agitation [Unknown]
  - Drug dose omission [Unknown]
  - Fibromyalgia [Unknown]
  - Suicidal ideation [Unknown]
  - Cerebrovascular accident [Unknown]
  - Heart rate decreased [Unknown]
  - Memory impairment [Not Recovered/Not Resolved]
  - Insomnia [Unknown]
  - Dizziness [Unknown]
  - Anger [Unknown]
  - Feeling abnormal [Unknown]
  - Arthritis [Unknown]
  - Dry mouth [Unknown]
  - Homicidal ideation [Unknown]
  - Headache [Unknown]
  - Hunger [Unknown]
  - Intentional product misuse [Unknown]
  - Stress [Unknown]
  - Weight increased [Unknown]
  - Coronary artery occlusion [Unknown]
  - Pain [Not Recovered/Not Resolved]

NARRATIVE: CASE EVENT DATE: 20150323
